FAERS Safety Report 8807029 (Version 2)
Quarter: 2013Q2

REPORT INFORMATION
  Report Type: Spontaneous
  Country: BR (occurrence: BR)
  Receive Date: 20120925
  Receipt Date: 20130405
  Transmission Date: 20140414
  Serious: Yes (Other)
  Sender: FDA-Public Use
  Company Number: PHHY2012BR082805

PATIENT
  Sex: Male

DRUGS (7)
  1. FORASEQ [Suspect]
     Indication: EMPHYSEMA
     Dosage: ONE TIME DAILY
  2. FORASEQ [Suspect]
     Dosage: TWO TIMES DAILY
  3. FORASEQ [Suspect]
     Dosage: ONE INHALATION A DAY
  4. COMBIVENT [Concomitant]
  5. AEROLIN ^3M^ [Concomitant]
     Indication: RESPIRATORY DISORDER
     Dosage: THREE TO FOUR TIMES A DAY
  6. AEROLIN ^3M^ [Concomitant]
     Indication: EMPHYSEMA
  7. SUSTRATE [Concomitant]
     Indication: CARDIAC DISORDER
     Dosage: 2 DF, QD
     Route: 048

REACTIONS (10)
  - Ventricular dysfunction [Not Recovered/Not Resolved]
  - Deafness [Not Recovered/Not Resolved]
  - Fall [Not Recovered/Not Resolved]
  - Haemorrhage [Not Recovered/Not Resolved]
  - Exostosis [Not Recovered/Not Resolved]
  - Thyroid neoplasm [Not Recovered/Not Resolved]
  - Syncope [Not Recovered/Not Resolved]
  - Head injury [Not Recovered/Not Resolved]
  - Dizziness [Not Recovered/Not Resolved]
  - Drug ineffective [Not Recovered/Not Resolved]
